FAERS Safety Report 6637792-7 (Version None)
Quarter: 2010Q1

REPORT INFORMATION
  Report Type: 
  Country: None (occurrence: None)
  Receive Date: 20100315
  Receipt Date: 20100315
  Transmission Date: 20100710
  Serious: Yes (Hospitalization)
  Sender: FDA-Public Use
  Company Number: None

PATIENT
  Age: 48 Year
  Sex: Female
  Weight: 77.1115 kg

DRUGS (1)
  1. TOPIRAMATE [Suspect]
     Dosage: UNSURE UNSURE PO
     Route: 048
     Dates: start: 20100201, end: 20100301

REACTIONS (2)
  - DIARRHOEA [None]
  - PRODUCT SUBSTITUTION ISSUE [None]
